FAERS Safety Report 4899902-1 (Version None)
Quarter: 2006Q1

REPORT INFORMATION
  Report Type: 
  Country: None (occurrence: None)
  Receive Date: 20060118
  Receipt Date: 20050912
  Transmission Date: 20060701
  Serious: No
  Sender: FDA-Public Use
  Company Number: 2005001783

PATIENT
  Age: 57 Year
  Sex: Female

DRUGS (9)
  1. TARCEVA [Suspect]
     Indication: NON-SMALL CELL LUNG CANCER
     Dosage: 150 MG (QD), ORAL
     Route: 048
     Dates: start: 20050812
  2. VITAMINS (VITAMINS) [Concomitant]
  3. MORPHINE [Concomitant]
  4. CALCIUM (CALCIUM) [Concomitant]
  5. MAGNESIUM (MAGNESIUM) [Concomitant]
  6. AMBIEN [Concomitant]
  7. PROTONIX [Concomitant]
  8. ZOLOFT [Concomitant]
  9. LOVENOX [Concomitant]

REACTIONS (1)
  - ALOPECIA [None]
